FAERS Safety Report 6632178-3 (Version None)
Quarter: 2010Q1

REPORT INFORMATION
  Report Type: 
  Country: None (occurrence: None)
  Receive Date: 20100310
  Receipt Date: 20100225
  Transmission Date: 20100710
  Serious: Yes (Hospitalization)
  Sender: FDA-Public Use
  Company Number: 230878J10USA

PATIENT
  Age: 63 Year
  Sex: Male
  Weight: 84 kg

DRUGS (10)
  1. REBIF [Suspect]
     Indication: MULTIPLE SCLEROSIS
     Dosage: SEE IMAGE
     Route: 058
     Dates: start: 20081212, end: 20100101
  2. REBIF [Suspect]
     Indication: MULTIPLE SCLEROSIS
     Dosage: SEE IMAGE
     Route: 058
     Dates: start: 20100218, end: 20100301
  3. REBIF [Suspect]
     Indication: MULTIPLE SCLEROSIS
     Dosage: SEE IMAGE
     Route: 058
     Dates: start: 20100301
  4. DOXASOZIN (DOXAZOSIN) [Concomitant]
  5. LOVASTATIN [Concomitant]
  6. ZOCOR [Concomitant]
  7. CARBIDOPA AND LEVODOPA (SINEMET) [Concomitant]
  8. CYMBALTA [Concomitant]
  9. TRAZODONE HCL [Concomitant]
  10. NASACORT [Concomitant]

REACTIONS (12)
  - AORTIC DISSECTION [None]
  - AORTIC VALVE INCOMPETENCE [None]
  - BLISTER [None]
  - CYSTITIS [None]
  - DEVICE RELATED INFECTION [None]
  - DIPLEGIA [None]
  - INFLUENZA LIKE ILLNESS [None]
  - PAIN IN EXTREMITY [None]
  - PERICARDIAL EFFUSION [None]
  - PLEURAL EFFUSION [None]
  - PROCEDURAL PAIN [None]
  - STAPHYLOCOCCAL INFECTION [None]
